FAERS Safety Report 4841189-X (Version None)
Quarter: 2005Q4

REPORT INFORMATION
  Report Type: 
  Country: None (occurrence: None)
  Receive Date: 20051130
  Receipt Date: 20051026
  Transmission Date: 20060501
  Serious: No
  Sender: FDA-Public Use
  Company Number: US-BRISTOL-MYERS SQUIBB COMPANY-13158035

PATIENT
  Age: 19 Year
  Sex: Female
  Weight: 68 kg

DRUGS (2)
  1. ABILIFY [Suspect]
     Indication: BIPOLAR DISORDER
     Dates: start: 20050301
  2. SYNTHROID [Concomitant]

REACTIONS (1)
  - PREGNANCY [None]
